FAERS Safety Report 10182629 (Version 1)
Quarter: 2014Q2

REPORT INFORMATION
  Report Type: Spontaneous
  Country: US (occurrence: None)
  Receive Date: 20140519
  Receipt Date: 20140519
  Transmission Date: 20141212
  Serious: Yes (Other)
  Sender: FDA-Public Use
  Company Number: None

PATIENT
  Age: 57 Year
  Sex: Female
  Weight: 113.4 kg

DRUGS (1)
  1. SAVELLA [Suspect]
     Indication: FIBROMYALGIA
     Dosage: BLISTER STARTER PAK, TWICE DAILY, TAKEN BY MOUTH
     Route: 048
     Dates: start: 20140423

REACTIONS (6)
  - Asthenia [None]
  - Dizziness [None]
  - Balance disorder [None]
  - Vomiting [None]
  - Feeling abnormal [None]
  - Product formulation issue [None]
